FAERS Safety Report 10567456 (Version 1)
Quarter: 2014Q4

REPORT INFORMATION
  Report Type: Spontaneous
  Country: GB (occurrence: GB)
  Receive Date: 20141106
  Receipt Date: 20141106
  Transmission Date: 20150529
  Serious: Yes (Disabling, Other)
  Sender: FDA-Public Use
  Company Number: GB-AUROBINDO-AUR-APL-2014-11539

PATIENT
  Sex: Male

DRUGS (2)
  1. DONEPEZIL 5 MG [Suspect]
     Active Substance: DONEPEZIL
     Indication: DEMENTIA ALZHEIMER^S TYPE
     Dosage: 5 MG, MORNING
     Route: 065
  2. DONEPEZIL 5 MG [Suspect]
     Active Substance: DONEPEZIL
     Dosage: 10 MG, MORNING
     Route: 065

REACTIONS (4)
  - Panic attack [Recovering/Resolving]
  - Insomnia [Recovered/Resolved]
  - Drug administration error [Recovering/Resolving]
  - Mobility decreased [Recovering/Resolving]
